FAERS Safety Report 8479164-9 (Version None)
Quarter: 2012Q2

REPORT INFORMATION
  Report Type: 
  Country: None (occurrence: None)
  Receive Date: 20120629
  Receipt Date: 20120620
  Transmission Date: 20120825
  Serious: Yes (Other)
  Sender: FDA-Public Use
  Company Number: JP-BAYER-2012-059170

PATIENT
  Age: 65 Year
  Sex: Male

DRUGS (2)
  1. ASPIRIN [Suspect]
     Indication: ANGINA UNSTABLE
     Dosage: UNK
     Route: 048
  2. PLAVIX [Concomitant]
     Indication: ANGINA UNSTABLE
     Dosage: UNK
     Route: 048

REACTIONS (2)
  - OCCULT BLOOD POSITIVE [None]
  - CORONARY ARTERY DISEASE [None]
